FAERS Safety Report 18289169 (Version 2)
Quarter: 2020Q4

REPORT INFORMATION
  Report Type: Spontaneous
  Country: US (occurrence: US)
  Receive Date: 20200921
  Receipt Date: 20201007
  Transmission Date: 20210113
  Serious: Yes (Other)
  Sender: FDA-Public Use
  Company Number: US-PFIZER INC-2020362492

PATIENT
  Age: 65 Year
  Sex: Female
  Weight: 38.56 kg

DRUGS (4)
  1. VALACYCLOVIR HCL [Suspect]
     Active Substance: VALACYCLOVIR HYDROCHLORIDE
     Indication: ORAL DISORDER
     Dosage: UNK
  2. FLUCONAZOLE. [Suspect]
     Active Substance: FLUCONAZOLE
     Indication: CANDIDA INFECTION
  3. FLUCONAZOLE. [Suspect]
     Active Substance: FLUCONAZOLE
     Indication: APHTHOUS ULCER
     Dosage: UNK
  4. FLUCONAZOLE. [Suspect]
     Active Substance: FLUCONAZOLE
     Indication: FUNGAL INFECTION

REACTIONS (5)
  - Irritable bowel syndrome [Recovering/Resolving]
  - Gastric disorder [Recovering/Resolving]
  - Drug ineffective [Unknown]
  - Illness [Recovering/Resolving]
  - Gastritis bacterial [Recovering/Resolving]
